FAERS Safety Report 18296072 (Version 1)
Quarter: 2020Q3

REPORT INFORMATION
  Report Type: Spontaneous
  Country: US (occurrence: DE)
  Receive Date: 20200922
  Receipt Date: 20200922
  Transmission Date: 20201103
  Serious: Yes (Death)
  Sender: FDA-Public Use
  Company Number: US-BAYER-2020-192968

PATIENT
  Age: 45 Year
  Sex: Male
  Weight: 87.99 kg

DRUGS (65)
  1. AMPHO MORONAL [Concomitant]
     Active Substance: AMPHOTERICIN B
     Indication: ANTIFUNGAL PROPHYLAXIS
     Route: 048
  2. ASCORBIC ACID. [Concomitant]
     Active Substance: ASCORBIC ACID
  3. FILGRASTIM [Suspect]
     Active Substance: FILGRASTIM
     Indication: COMPLICATIONS OF BONE MARROW TRANSPLANT
     Dosage: UNK
     Route: 042
     Dates: start: 19981127, end: 19981130
  4. LASIX [Suspect]
     Active Substance: FUROSEMIDE
     Indication: OEDEMA
     Dosage: 40 MG
     Route: 065
     Dates: start: 19981126, end: 19981126
  5. INSULIN HUMAN [Concomitant]
     Active Substance: INSULIN HUMAN
     Indication: DIABETES MELLITUS
     Dosage: UNK
     Route: 042
     Dates: start: 19981115, end: 19981207
  6. LENOGRASTIM [Concomitant]
     Active Substance: LENOGRASTIM
     Indication: BONE MARROW TRANSPLANT
     Dosage: UNK
     Route: 042
     Dates: end: 19981128
  7. MAGNESIUM [Concomitant]
     Active Substance: MAGNESIUM
     Indication: BLOOD MAGNESIUM DECREASED
     Dosage: 1 MG, BID
     Route: 042
     Dates: end: 19981202
  8. TARIVID [OFLOXACIN] [Concomitant]
     Active Substance: OFLOXACIN
     Indication: INFECTION
     Dosage: UNK
     Route: 042
     Dates: end: 19981110
  9. KONAKION [Suspect]
     Active Substance: PHYTONADIONE
     Indication: COAGULOPATHY
     Dosage: 10 MG, QD
     Dates: start: 19981112
  10. PREDNISOLONE. [Suspect]
     Active Substance: PREDNISOLONE
     Indication: CONJUNCTIVITIS
     Dosage: UNK
     Route: 061
     Dates: start: 19981204, end: 19981204
  11. SODIUM BICARBONATE. [Concomitant]
     Active Substance: SODIUM BICARBONATE
     Indication: ACIDOSIS
     Dosage: UNK
     Dates: start: 19981201, end: 19981206
  12. SULFAMETHOXAZOLE;TRIMETHOPRIM [Suspect]
     Active Substance: SULFAMETHOXAZOLE\TRIMETHOPRIM
     Indication: INFECTION
     Dosage: UNK
     Dates: start: 19981129, end: 19981129
  13. SULFAMETHOXAZOLE;TRIMETHOPRIM [Suspect]
     Active Substance: SULFAMETHOXAZOLE\TRIMETHOPRIM
     Indication: INFECTION
     Dosage: UNK
     Dates: start: 19981127, end: 19981129
  14. DIPEPTAMIN [Concomitant]
     Active Substance: AMINO ACIDS, SOURCE UNSPECIFIED
     Indication: PARENTERAL NUTRITION
     Dosage: UNK
     Route: 042
     Dates: end: 19981128
  15. AMBISOME [Suspect]
     Active Substance: AMPHOTERICIN B
     Indication: FUNGAL INFECTION
     Dosage: 300 MG
     Dates: start: 19981122, end: 19990101
  16. FUROSEMIDE. [Suspect]
     Active Substance: FUROSEMIDE
     Indication: OEDEMA
     Dosage: 10 MG, QD
     Route: 042
     Dates: start: 19981205, end: 19981205
  17. METHYLPREDNISOLONE. [Concomitant]
     Active Substance: METHYLPREDNISOLONE
     Dosage: 64 MG
     Route: 042
     Dates: start: 19981121, end: 19990101
  18. PHENYLEPHRINE HYDROCHLORIDE. [Concomitant]
     Active Substance: PHENYLEPHRINE HYDROCHLORIDE
     Dosage: UNK
     Dates: start: 19981113
  19. CALCIUM [Concomitant]
     Active Substance: CALCIUM
     Route: 042
  20. ZIENAM [Suspect]
     Active Substance: CILASTATIN SODIUM\IMIPENEM
     Indication: INFECTION
     Dosage: 500 MG, BID
     Route: 042
     Dates: start: 19981121, end: 19981128
  21. TAVEGIL [CLEMASTINE] [Concomitant]
     Active Substance: CLEMASTINE
     Indication: GRAFT VERSUS HOST DISEASE
     Dosage: UNK
     Route: 042
     Dates: start: 19981118, end: 19981121
  22. FUROSEMIDE. [Suspect]
     Active Substance: FUROSEMIDE
     Indication: OEDEMA
     Dosage: 10 MG, QD
     Route: 042
     Dates: start: 19981208
  23. DEXTROSE. [Concomitant]
     Active Substance: DEXTROSE
     Indication: PARENTERAL NUTRITION
     Route: 042
  24. PREDNISOLONE. [Suspect]
     Active Substance: PREDNISOLONE
     Indication: CONJUNCTIVITIS
     Dosage: UNK
     Dates: start: 19981119, end: 19981121
  25. TOBRAMYCIN. [Suspect]
     Active Substance: TOBRAMYCIN
     Indication: INFECTION
     Dosage: 520 MG, QD
     Dates: start: 19981121, end: 19981121
  26. FUROSEMIDE. [Suspect]
     Active Substance: FUROSEMIDE
     Indication: OEDEMA
     Dosage: 10 MG, QD
     Route: 042
     Dates: start: 19981202, end: 19981203
  27. REMERGIL [Suspect]
     Active Substance: MIRTAZAPINE
     Indication: DEPRESSION
     Dosage: UNK
     Dates: start: 19981126, end: 19981130
  28. REMERGIL [Suspect]
     Active Substance: MIRTAZAPINE
     Indication: DEPRESSION
     Dosage: UNK
     Route: 048
     Dates: start: 19981203, end: 19981203
  29. INZOLEN [Concomitant]
     Active Substance: MAGNESIUM ASPARTATE\POTASSIUM ASPARTATE
  30. RESONIUM A [Suspect]
     Active Substance: SODIUM POLYSTYRENE SULFONATE
     Indication: HYPERKALAEMIA
     Dosage: UNK
     Dates: start: 19981129, end: 19981129
  31. SULFAMETHOXAZOLE;TRIMETHOPRIM [Suspect]
     Active Substance: SULFAMETHOXAZOLE\TRIMETHOPRIM
     Indication: INFECTION
     Dosage: UNK
     Dates: start: 19981113, end: 19981120
  32. ALPROSTADIL. [Concomitant]
     Active Substance: ALPROSTADIL
     Indication: CARDIOVASCULAR DISORDER
     Dosage: UNK
     Route: 042
     Dates: start: 19981111, end: 19981119
  33. FORTUM [CEFTAZIDIME] [Suspect]
     Active Substance: CEFTAZIDIME
     Indication: INFECTION
     Dosage: 2.0 G, QD
     Dates: start: 19981111, end: 19981120
  34. FORTUM [CEFTAZIDIME] [Suspect]
     Active Substance: CEFTAZIDIME
     Indication: INFECTION
     Dosage: 2 G, QD
     Route: 042
     Dates: start: 19981126, end: 19981205
  35. ZIENAM [Suspect]
     Active Substance: CILASTATIN SODIUM\IMIPENEM
     Indication: INFECTION
     Dosage: 500 MG, BID
     Route: 042
     Dates: start: 19981205, end: 19990101
  36. GLOBULIN V [Concomitant]
     Indication: BONE MARROW TRANSPLANT
     Dosage: UNK
     Route: 042
     Dates: start: 19981115, end: 19981126
  37. NOVALGIN (METAMIZOLE SODIUM) [Suspect]
     Active Substance: METAMIZOLE SODIUM
     Indication: PAIN
     Dosage: 1 G, QD
     Route: 042
     Dates: start: 19981111, end: 19981121
  38. NOVALGIN (METAMIZOLE SODIUM) [Suspect]
     Active Substance: METAMIZOLE SODIUM
     Indication: PAIN
     Dosage: UNK
     Route: 042
     Dates: start: 19981121, end: 19981121
  39. CANDIO?HERMAL [Concomitant]
     Active Substance: NYSTATIN
     Indication: CANDIDA INFECTION
     Dosage: UNK
     Dates: start: 19981204, end: 19981204
  40. ANTRA [OMEPRAZOLE] [Concomitant]
     Active Substance: OMEPRAZOLE
  41. AQUAPHOR (XIPAMIDE) [Concomitant]
     Active Substance: XIPAMIDE
     Dosage: UNK
     Route: 061
     Dates: start: 19981120, end: 19981120
  42. CIPROBAY 400/200 MG/ML [Suspect]
     Active Substance: CIPROFLOXACIN HYDROCHLORIDE
     Indication: CYSTITIS
     Dosage: UNK
     Route: 042
     Dates: start: 19981130, end: 19990101
  43. ACETYLCYSTEINE. [Concomitant]
     Active Substance: ACETYLCYSTEINE
     Indication: UNEVALUABLE EVENT
     Dosage: UNK
     Route: 042
     Dates: start: 19981117, end: 19981119
  44. AMPHOTERICIN B. [Concomitant]
     Active Substance: AMPHOTERICIN B
     Indication: FUNGAL INFECTION
     Dosage: UNK
     Route: 042
     Dates: start: 19981117, end: 19981121
  45. VOMEX A [Suspect]
     Active Substance: DIMENHYDRINATE
     Indication: NAUSEA
     Dosage: UNK
     Route: 042
     Dates: start: 19981118, end: 19981130
  46. DIFLUCAN [Suspect]
     Active Substance: FLUCONAZOLE
     Indication: ANTIFUNGAL PROPHYLAXIS
     Dosage: 200 MG, QD
     Route: 042
     Dates: end: 19981119
  47. GENTAMICIN SULFATE. [Suspect]
     Active Substance: GENTAMICIN SULFATE
     Indication: CONJUNCTIVITIS
     Dosage: UNK
     Route: 047
     Dates: start: 19981129, end: 19981129
  48. CLONT [METRONIDAZOLE] [Concomitant]
     Active Substance: METRONIDAZOLE
     Indication: INFECTION
     Route: 042
  49. MORPHINE [Concomitant]
     Active Substance: MORPHINE
     Indication: SEDATION
     Dosage: UNK
     Route: 042
     Dates: start: 19981111, end: 19981123
  50. SANDIMMUN [Concomitant]
     Active Substance: CYCLOSPORINE
     Indication: BONE MARROW TRANSPLANT
     Route: 042
  51. DOPAMINE HYDROCHLORIDE. [Suspect]
     Active Substance: DOPAMINE HYDROCHLORIDE
     Indication: HYPOTENSION
     Dosage: UNK
     Route: 042
     Dates: start: 19981119, end: 19990101
  52. NOVALGIN (METAMIZOLE SODIUM) [Suspect]
     Active Substance: METAMIZOLE SODIUM
     Indication: PAIN
     Dosage: 1 G, QD
     Route: 042
     Dates: start: 19981205, end: 19981205
  53. NOVALGIN (METAMIZOLE SODIUM) [Suspect]
     Active Substance: METAMIZOLE SODIUM
     Indication: PAIN
     Dosage: 1 G, QD
     Route: 042
     Dates: start: 19981208
  54. METHOTREXATE. [Concomitant]
     Active Substance: METHOTREXATE
     Indication: BONE MARROW TRANSPLANT
     Dosage: UNK
     Route: 042
     Dates: start: 19981111, end: 19981111
  55. DOLANTIN [Concomitant]
     Active Substance: MEPERIDINE
     Indication: SEDATION
     Dosage: UNK
     Route: 042
     Dates: start: 19981111, end: 19981121
  56. KONAKION [Suspect]
     Active Substance: PHYTONADIONE
     Indication: COAGULOPATHY
     Dosage: UNK
     Dates: start: 19981123, end: 19981207
  57. SODIUM CHLORIDE. [Concomitant]
     Active Substance: SODIUM CHLORIDE
     Indication: HYPONATRAEMIA
  58. ACICLOVIR [Concomitant]
     Active Substance: ACYCLOVIR
     Indication: PROPHYLAXIS
     Dosage: UNK
     Route: 042
     Dates: end: 19981122
  59. PEPDUL [Concomitant]
     Active Substance: FAMOTIDINE
     Indication: PROPHYLAXIS
     Dosage: UNK
     Route: 042
     Dates: end: 19981110
  60. GANCICLOVIR. [Suspect]
     Active Substance: GANCICLOVIR
     Indication: PRODUCT USED FOR UNKNOWN INDICATION
     Dosage: 225 MG, BID
     Route: 042
     Dates: start: 19981127, end: 19990101
  61. TAVOR (LORAZEPAM) [Suspect]
     Active Substance: LORAZEPAM
     Indication: SEDATION
     Dosage: 1 MG, BID
     Route: 048
     Dates: end: 19981125
  62. K?DUR [Concomitant]
     Active Substance: POTASSIUM CHLORIDE
     Indication: HYPOKALAEMIA
     Route: 042
  63. PREDNISOLONE. [Suspect]
     Active Substance: PREDNISOLONE
     Indication: ILL-DEFINED DISORDER
     Dosage: UNK
     Route: 061
     Dates: start: 19981207, end: 19990101
  64. SOLU?DECORTIN?H [Concomitant]
     Active Substance: PREDNISOLONE SODIUM SUCCINATE
     Indication: GRAFT VERSUS HOST DISEASE
     Dosage: UNK
     Route: 042
     Dates: start: 19981119, end: 19990121
  65. INTRALIPID [Concomitant]
     Active Substance: EGG PHOSPHOLIPIDS\GLYCERIN\SOYBEAN OIL
     Indication: INFECTION

REACTIONS (3)
  - Graft versus host disease [Fatal]
  - Toxic epidermal necrolysis [Fatal]
  - Multiple organ dysfunction syndrome [Fatal]

NARRATIVE: CASE EVENT DATE: 19981121
